FAERS Safety Report 11962422 (Version 2)
Quarter: 2016Q1

REPORT INFORMATION
  Report Type: Spontaneous
  Country: ES (occurrence: ES)
  Receive Date: 20160126
  Receipt Date: 20160309
  Transmission Date: 20160526
  Serious: Yes (Life-Threatening, Hospitalization)
  Sender: FDA-Public Use
  Company Number: ES-UCBSA-2016002218

PATIENT
  Age: 54 Year
  Sex: Female

DRUGS (4)
  1. VILDAGLIPTIN [Suspect]
     Active Substance: VILDAGLIPTIN
     Indication: DIABETES MELLITUS
     Dosage: 50 MG, 2X/DAY (BID)
     Route: 048
     Dates: start: 20140805, end: 20151114
  2. VIMPAT [Suspect]
     Active Substance: LACOSAMIDE
     Indication: PARTIAL SEIZURES WITH SECONDARY GENERALISATION
     Dosage: 200 MG, 2X/DAY (BID)
     Route: 048
     Dates: start: 201310
  3. FENOFIBRATE. [Concomitant]
     Active Substance: FENOFIBRATE
     Indication: PRODUCT USED FOR UNKNOWN INDICATION
     Dosage: 200 MG, ONCE DAILY (QD)
     Route: 048
  4. METFORMIN [Suspect]
     Active Substance: METFORMIN HYDROCHLORIDE
     Indication: DIABETES MELLITUS
     Dosage: 1000 MG, 2X/DAY (BID)
     Route: 048
     Dates: start: 20140805, end: 20151114

REACTIONS (2)
  - Acute myeloid leukaemia [Not Recovered/Not Resolved]
  - Off label use [Unknown]

NARRATIVE: CASE EVENT DATE: 201310
